FAERS Safety Report 16949352 (Version 1)
Quarter: 2019Q4

REPORT INFORMATION
  Report Type: Spontaneous
  Country: US (occurrence: US)
  Receive Date: 20191023
  Receipt Date: 20191023
  Transmission Date: 20200122
  Serious: No
  Sender: FDA-Public Use
  Company Number: US-CPL-001257

PATIENT
  Sex: Female

DRUGS (1)
  1. GLIBENCLAMIDE [Suspect]
     Active Substance: GLYBURIDE
     Indication: PRODUCT USED FOR UNKNOWN INDICATION
     Dosage: DOSE: 10 MG TWICE A DAY

REACTIONS (3)
  - Musculoskeletal pain [Unknown]
  - Pain in extremity [Unknown]
  - Drug ineffective [Unknown]
